FAERS Safety Report 8605774-1 (Version None)
Quarter: 2012Q3

REPORT INFORMATION
  Report Type: 
  Country: None (occurrence: None)
  Receive Date: 20120820
  Receipt Date: 20120815
  Transmission Date: 20120928
  Serious: No
  Sender: FDA-Public Use
  Company Number: US-PFIZER INC-2012199886

PATIENT

DRUGS (1)
  1. ALPRAZOLAM [Suspect]
     Dosage: UNK

REACTIONS (2)
  - ANXIETY [None]
  - PALPITATIONS [None]
